FAERS Safety Report 4298982-4 (Version None)
Quarter: 2004Q1

REPORT INFORMATION
  Report Type: 
  Country: None (occurrence: None)
  Receive Date: 20040217
  Receipt Date: 20040205
  Transmission Date: 20041129
  Serious: Yes (Death)
  Sender: FDA-Public Use
  Company Number: HQWYE839305FEB04

PATIENT
  Sex: Male

DRUGS (1)
  1. CORDARONE [Suspect]
     Dosage: 300 MG ONCE
     Route: 042

REACTIONS (3)
  - BRADYCARDIA [None]
  - CARDIAC ARREST [None]
  - MEDICATION ERROR [None]
